FAERS Safety Report 17196327 (Version 2)
Quarter: 2020Q1

REPORT INFORMATION
  Report Type: Spontaneous
  Country: AR (occurrence: AR)
  Receive Date: 20191224
  Receipt Date: 20200226
  Transmission Date: 20200409
  Serious: Yes (Death, Other)
  Sender: FDA-Public Use
  Company Number: AR-BRISTOL-MYERS SQUIBB COMPANY-BMS-2019-122972

PATIENT
  Age: 67 Year
  Sex: Male

DRUGS (1)
  1. OPDIVO [Suspect]
     Active Substance: NIVOLUMAB
     Indication: MALIGNANT MELANOMA
     Dosage: UNK, QMO
     Route: 058
     Dates: start: 201904

REACTIONS (6)
  - Sudden cardiac death [Fatal]
  - Hypertrophic cardiomyopathy [Unknown]
  - Hypertriglyceridaemia [Recovering/Resolving]
  - Hypothyroidism [Recovering/Resolving]
  - Congestive cardiomyopathy [Unknown]
  - Hyperlipidaemia [Recovering/Resolving]

NARRATIVE: CASE EVENT DATE: 201910
